FAERS Safety Report 8971248 (Version 1)
Quarter: 2012Q4

REPORT INFORMATION
  Report Type: Report from Study
  Country: CZ (occurrence: CZ)
  Receive Date: 20121217
  Receipt Date: 20121217
  Transmission Date: 20130627
  Serious: Yes (Death, Life-Threatening, Hospitalization)
  Sender: FDA-Public Use
  Company Number: CZ-GLAXOSMITHKLINE-B0852130A

PATIENT
  Age: 46 Year
  Sex: Female

DRUGS (20)
  1. MELPHALAN [Suspect]
     Indication: PRODUCT USED FOR UNKNOWN INDICATION
     Route: 042
     Dates: start: 20110117
  2. RITUXIMAB [Suspect]
     Indication: DIFFUSE LARGE B-CELL LYMPHOMA
     Route: 042
     Dates: start: 20100818
  3. CARMUSTINE [Suspect]
     Indication: PRODUCT USED FOR UNKNOWN INDICATION
     Route: 042
     Dates: start: 20110112
  4. ETOPOSIDE [Suspect]
     Indication: PRODUCT USED FOR UNKNOWN INDICATION
     Route: 042
     Dates: start: 20110113
  5. CYTARABINE [Suspect]
     Indication: PRODUCT USED FOR UNKNOWN INDICATION
     Dosage: 340MG per day
     Route: 042
     Dates: start: 20110113
  6. FILGRASTIM [Suspect]
     Indication: PRODUCT USED FOR UNKNOWN INDICATION
     Route: 058
     Dates: start: 20110125
  7. PARACETAMOLUM [Concomitant]
     Indication: PREMEDICATION
     Route: 048
     Dates: start: 20100818, end: 20100818
  8. HYDROCORTISON [Concomitant]
     Indication: PREMEDICATION
     Route: 042
     Dates: start: 20100818, end: 20100818
  9. VINCRISTINE [Concomitant]
     Indication: DIFFUSE LARGE B-CELL LYMPHOMA
     Dosage: 1MG per day
     Route: 042
  10. PREDNISONE [Concomitant]
     Dosage: 100MG per day
     Route: 048
     Dates: start: 20100818, end: 20100818
  11. OMEPRAZOLE [Concomitant]
     Dosage: 40MG per day
     Route: 048
     Dates: start: 20100818
  12. ALLOPURINOL [Concomitant]
     Dosage: 600MG per day
     Route: 048
     Dates: start: 20100818
  13. POTASSIUM CHLORIDE [Concomitant]
     Dosage: 2MG per day
     Route: 048
     Dates: start: 20100818
  14. NADROPARIN CALCIUM [Concomitant]
     Dosage: 11400IU per day
     Route: 058
     Dates: start: 20100818
  15. ACICLOVIRUM [Concomitant]
     Dosage: 500MG per day
     Route: 042
     Dates: start: 20110122, end: 20110126
  16. ITRACONAZOLUM [Concomitant]
     Dosage: 200MG per day
     Route: 042
     Dates: start: 20110122, end: 20110129
  17. OMEPRAZOLE [Concomitant]
     Route: 042
     Dates: start: 20110122, end: 20110129
  18. METOCLOPRAMIDE HYDROCHLORIDE [Concomitant]
     Dosage: 10MG per day
     Route: 042
     Dates: start: 20110119, end: 20110126
  19. MORPHINE [Concomitant]
     Dosage: 1.5MLH per day
     Route: 042
     Dates: start: 20110122, end: 20110126
  20. DIPYRONE [Concomitant]
     Route: 042
     Dates: start: 20110124, end: 20110129

REACTIONS (2)
  - Infusion related reaction [Recovered/Resolved]
  - Septic shock [Fatal]
